FAERS Safety Report 12173499 (Version 1)
Quarter: 2016Q1

REPORT INFORMATION
  Report Type: Report from Study
  Country: US (occurrence: US)
  Receive Date: 20160311
  Receipt Date: 20160311
  Transmission Date: 20160526
  Serious: Yes (Hospitalization)
  Sender: FDA-Public Use
  Company Number: US-BIOGEN-2016BI00198809

PATIENT
  Sex: Female
  Weight: 50.39 kg

DRUGS (1)
  1. AVONEX [Suspect]
     Active Substance: INTERFERON BETA-1A
     Indication: MULTIPLE SCLEROSIS
     Route: 030
     Dates: start: 20030625

REACTIONS (21)
  - Hernia repair [Recovered/Resolved]
  - Speech disorder [Not Recovered/Not Resolved]
  - Dehydration [Recovered/Resolved]
  - Pyrexia [Unknown]
  - Abnormal loss of weight [Not Recovered/Not Resolved]
  - Thirst [Unknown]
  - Sepsis [Recovered/Resolved]
  - Feeding disorder [Unknown]
  - Urinary tract infection [Recovered/Resolved]
  - Constipation [Not Recovered/Not Resolved]
  - Reading disorder [Not Recovered/Not Resolved]
  - Multiple sclerosis [Unknown]
  - Anxiety [Unknown]
  - Abasia [Not Recovered/Not Resolved]
  - Urinary incontinence [Unknown]
  - Aptyalism [Not Recovered/Not Resolved]
  - Anal incontinence [Unknown]
  - Asthenia [Not Recovered/Not Resolved]
  - Adverse drug reaction [Recovered/Resolved]
  - Mobility decreased [Recovered/Resolved]
  - Balance disorder [Not Recovered/Not Resolved]

NARRATIVE: CASE EVENT DATE: 2013
